FAERS Safety Report 11343265 (Version 1)
Quarter: 2015Q3

REPORT INFORMATION
  Report Type: Spontaneous
  Country: US (occurrence: US)
  Receive Date: 20150806
  Receipt Date: 20150806
  Transmission Date: 20151125
  Serious: No
  Sender: FDA-Public Use
  Company Number: US-BRISTOL-MYERS SQUIBB COMPANY-BMS-2015-038017

PATIENT
  Sex: Female

DRUGS (2)
  1. GLUCOPHAGE [Suspect]
     Active Substance: METFORMIN HYDROCHLORIDE
     Indication: GESTATIONAL DIABETES
     Route: 065
  2. GLUCOVANCE [Suspect]
     Active Substance: GLYBURIDE\METFORMIN HYDROCHLORIDE
     Indication: GESTATIONAL DIABETES
     Route: 065

REACTIONS (2)
  - Off label use [Unknown]
  - Maternal exposure during pregnancy [Unknown]
